FAERS Safety Report 24025596 (Version 1)
Quarter: 2024Q2

REPORT INFORMATION
  Report Type: Spontaneous
  Country: CN (occurrence: CN)
  Receive Date: 20240628
  Receipt Date: 20240628
  Transmission Date: 20240716
  Serious: No
  Sender: FDA-Public Use
  Company Number: CN-ROCHE-3435635

PATIENT
  Age: 47 Year
  Sex: Male
  Weight: 63.0 kg

DRUGS (1)
  1. ALECENSA [Suspect]
     Active Substance: ALECTINIB HYDROCHLORIDE
     Indication: Non-small cell lung cancer
     Dosage: DF=CAPSULE
     Route: 048
     Dates: start: 20221201

REACTIONS (1)
  - Photosensitivity reaction [Unknown]
